FAERS Safety Report 6279217-X (Version None)
Quarter: 2009Q3

REPORT INFORMATION
  Report Type: 
  Country: None (occurrence: None)
  Receive Date: 20090720
  Receipt Date: 20090720
  Transmission Date: 20100115
  Serious: Yes (Other)
  Sender: FDA-Public Use
  Company Number: None

PATIENT
  Age: 64 Year
  Sex: Female
  Weight: 56.6996 kg

DRUGS (1)
  1. CIPROFLOXACIN [Suspect]
     Indication: URINARY TRACT INFECTION
     Dosage: 1 TABLET 2 X PER DAY PO
     Route: 048
     Dates: start: 20090714, end: 20090716

REACTIONS (2)
  - LOSS OF EMPLOYMENT [None]
  - TENDON DISORDER [None]
